FAERS Safety Report 5465855-0 (Version None)
Quarter: 2007Q3

REPORT INFORMATION
  Report Type: 
  Country: None (occurrence: None)
  Receive Date: 20070924
  Receipt Date: 20070917
  Transmission Date: 20080115
  Serious: Yes (Other)
  Sender: FDA-Public Use
  Company Number: PHBS2007US15367

PATIENT
  Age: 75 Year
  Sex: Male

DRUGS (6)
  1. ZOLEDRONIC ACID [Suspect]
     Indication: METASTASES TO BONE
     Route: 042
     Dates: start: 20050526, end: 20060205
  2. ANTINEOPLASTIC AGENTS [Concomitant]
  3. DOCETAXEL [Concomitant]
  4. HORMONES [Concomitant]
  5. GOSERELIN [Concomitant]
  6. BICALUTAMIDE [Concomitant]

REACTIONS (18)
  - APICECTOMY [None]
  - BONE DEBRIDEMENT [None]
  - DENTAL FISTULA [None]
  - GINGIVAL BLEEDING [None]
  - GINGIVAL PAIN [None]
  - GINGIVITIS [None]
  - OEDEMA MOUTH [None]
  - OROPHARYNGEAL PLAQUE [None]
  - OSTEONECROSIS [None]
  - OSTEOPENIA [None]
  - PAIN IN JAW [None]
  - PALATAL OEDEMA [None]
  - PERIODONTITIS [None]
  - PURULENT DISCHARGE [None]
  - RESORPTION BONE INCREASED [None]
  - SCAR [None]
  - STOMATITIS [None]
  - TOOTH INFECTION [None]
